FAERS Safety Report 4755496-2 (Version None)
Quarter: 2005Q3

REPORT INFORMATION
  Report Type: 
  Country: None (occurrence: None)
  Receive Date: 20050830
  Receipt Date: 20041103
  Transmission Date: 20060218
  Serious: Yes (Other)
  Sender: FDA-Public Use
  Company Number: US-BRISTOL-MYERS SQUIBB COMPANY-12754370

PATIENT
  Age: 55 Year
  Sex: Female
  Weight: 57 kg

DRUGS (11)
  1. ABILIFY [Suspect]
     Indication: BIPOLAR DISORDER
     Dates: start: 20020101
  2. ABILIFY [Suspect]
     Indication: PSYCHOTIC DISORDER
     Dates: start: 20020101
  3. ABILIFY [Suspect]
     Indication: MANIA
     Dates: start: 20020101
  4. TEGRETOL [Concomitant]
  5. LORAZEPAM [Concomitant]
  6. LEXAPRO [Concomitant]
  7. VITAMIN E [Concomitant]
  8. VITAMIN B COMPLEX CAP [Concomitant]
  9. AXERT [Concomitant]
  10. PLAQUENIL [Concomitant]
  11. NABUMETONE [Concomitant]

REACTIONS (7)
  - DIZZINESS [None]
  - DYSPNOEA [None]
  - FOOD CRAVING [None]
  - HEPATITIS [None]
  - HUNGER [None]
  - MALAISE [None]
  - RESTLESSNESS [None]
